FAERS Safety Report 9496834 (Version 1)
Quarter: 2013Q3

REPORT INFORMATION
  Report Type: Spontaneous
  Country: US (occurrence: US)
  Receive Date: 20130904
  Receipt Date: 20130904
  Transmission Date: 20140515
  Serious: Yes (Hospitalization, Other)
  Sender: FDA-Public Use
  Company Number: US-BAYER-2013-104704

PATIENT
  Age: 78 Year
  Sex: Male

DRUGS (20)
  1. BAYER GENUINE ASPIRIN ORIGINAL STRENGTH [Suspect]
     Dosage: 325 MG, QD
     Route: 048
  2. SUNITINIB [Suspect]
     Dosage: 37.5 MG, QD
     Route: 048
     Dates: start: 20121130, end: 20121210
  3. DASATINIB [Suspect]
     Dosage: 100 MG, QD
     Route: 048
     Dates: start: 20120920, end: 20121031
  4. ABIRATERONE [Suspect]
     Dosage: 1000 MG, QD
     Route: 048
     Dates: start: 20120531, end: 20121210
  5. ADVIL [Suspect]
  6. HYDROCHLOROTHIAZIDE [Suspect]
     Dosage: 25 MG, QD
     Route: 048
  7. POTASSIUM CHLORIDE [Suspect]
     Dosage: 20 MEQ, UNK
  8. ADVAIR DISKUS [Suspect]
     Dosage: 100 MG, UNK
  9. ADVAIR DISKUS [Suspect]
     Dosage: 50 MG, UNK
  10. COMBIVENT [Suspect]
     Dosage: 14.7 G, PRN
     Route: 045
  11. COREG [Suspect]
     Dosage: 6.25 MG, UNK
     Route: 048
  12. NORCO [Suspect]
     Dosage: 5 MG, QID
     Route: 048
  13. NORCO [Suspect]
     Dosage: 325 MG, QID
     Route: 048
  14. ZOMETA [Suspect]
     Dosage: 4 MG, ANNUALLY
     Route: 042
  15. LUPRON [Suspect]
     Dosage: 22.5 MG, Q3MON
     Route: 030
  16. CARAFATE [Suspect]
     Dosage: 10 ML, UNK
  17. XOPENEX [Suspect]
     Dosage: 2 DF, QD
  18. HYDROMORPHONE [Suspect]
     Dosage: 2 MG, UNK
  19. AUGMENTIN [Suspect]
     Dosage: 875 MG, BID
     Route: 048
  20. TAXOTERE [Suspect]
     Dosage: UNK
     Dates: start: 2012

REACTIONS (6)
  - Metastases to spine [None]
  - Metastases to bone [None]
  - Mucosal inflammation [Recovered/Resolved]
  - Neutropenia [Recovered/Resolved]
  - Fatigue [Recovered/Resolved]
  - Pyrexia [Recovered/Resolved]
